FAERS Safety Report 5603331-2 (Version None)
Quarter: 2008Q1

REPORT INFORMATION
  Report Type: 
  Country: None (occurrence: None)
  Receive Date: 20080122
  Receipt Date: 20080109
  Transmission Date: 20080703
  Serious: Yes (Death, Hospitalization)
  Sender: FDA-Public Use
  Company Number: 2008AL000207

PATIENT
  Age: 73 Year
  Sex: Female

DRUGS (1)
  1. METFORMIN HYDROCHLORIDE [Suspect]
     Indication: TYPE 2 DIABETES MELLITUS
     Dosage: 500 MG;BID;PO
     Route: 048
     Dates: start: 20000101

REACTIONS (8)
  - ANURIA [None]
  - DISCOMFORT [None]
  - DYSPNOEA [None]
  - GENERAL PHYSICAL HEALTH DETERIORATION [None]
  - INFLUENZA LIKE ILLNESS [None]
  - LACTIC ACIDOSIS [None]
  - PNEUMONIA [None]
  - SHOCK [None]
